FAERS Safety Report 6699908-6 (Version None)
Quarter: 2010Q2

REPORT INFORMATION
  Report Type: 
  Country: None (occurrence: None)
  Receive Date: 20100419
  Receipt Date: 20090818
  Transmission Date: 20101027
  Serious: Yes (Other)
  Sender: FDA-Public Use
  Company Number: 09-001366

PATIENT
  Age: 43 Year
  Sex: Female
  Weight: 63.5 kg

DRUGS (2)
  1. LOESTRIN 24 FE [Suspect]
     Indication: CONTRACEPTION
     Dosage: 20/1000UG, QD, ORAL
     Route: 048
     Dates: start: 20070801
  2. BENADRYL [Concomitant]

REACTIONS (4)
  - CERVICAL DYSPLASIA [None]
  - CERVIX INFLAMMATION [None]
  - HYPOMENORRHOEA [None]
  - SMEAR CERVIX ABNORMAL [None]
